FAERS Safety Report 23677290 (Version 1)
Quarter: 2024Q1

REPORT INFORMATION
  Report Type: Spontaneous
  Country: GB (occurrence: GB)
  Receive Date: 20240327
  Receipt Date: 20240327
  Transmission Date: 20240410
  Serious: Yes (Other)
  Sender: FDA-Public Use
  Company Number: GB-MYLANLABS-2024M1021843

PATIENT

DRUGS (1)
  1. PREGABALIN [Suspect]
     Active Substance: PREGABALIN
     Indication: Back pain
     Dosage: UNKNOWN
     Route: 065

REACTIONS (4)
  - Abnormal behaviour [Unknown]
  - Mood swings [Unknown]
  - Suicidal ideation [Unknown]
  - Vision blurred [Unknown]
